FAERS Safety Report 10217880 (Version 2)
Quarter: 2014Q2

REPORT INFORMATION
  Report Type: Other
  Country: CA (occurrence: CA)
  Receive Date: 20140605
  Receipt Date: 20140605
  Transmission Date: 20141212
  Serious: Yes (Hospitalization, Other)
  Sender: FDA-Public Use
  Company Number: CA-GSKPPD-2014GSK029190

PATIENT
  Age: 78 Year
  Sex: 0

DRUGS (3)
  1. AVANDIA [Suspect]
     Indication: DIABETES MELLITUS
     Dosage: AVANDIA WAS NOT LISTED AMONG THE PATIENT^S DISCHARGE RECORDS
     Route: 048
  2. METOPROLOL [Concomitant]
     Route: 048
  3. ASPIRIN [Concomitant]

REACTIONS (4)
  - Atrioventricular block first degree [Recovered/Resolved]
  - Bundle branch block left [None]
  - Implantable defibrillator insertion [Recovered/Resolved]
  - Atrial fibrillation [None]
